FAERS Safety Report 7383550-8 (Version None)
Quarter: 2011Q1

REPORT INFORMATION
  Report Type: 
  Country: None (occurrence: None)
  Receive Date: 20110325
  Receipt Date: 20110325
  Transmission Date: 20110831
  Serious: No
  Sender: FDA-Public Use
  Company Number: None

PATIENT
  Age: 59 Year
  Sex: Female
  Weight: 70.3075 kg

DRUGS (1)
  1. ADVANCED REVITALIFT DEEPSET L'OREAL PARIS [Suspect]
     Indication: SKIN WRINKLING
     Dosage: APPROX 1/2 OR 2 ML SAMPLE PKGE ONCE TOP
     Route: 061

REACTIONS (3)
  - APPLICATION SITE PRURITUS [None]
  - APPLICATION SITE ERYTHEMA [None]
  - APPLICATION SITE URTICARIA [None]
